FAERS Safety Report 19168097 (Version 10)
Quarter: 2022Q2

REPORT INFORMATION
  Report Type: Report from Study
  Country: DO (occurrence: DO)
  Receive Date: 20210422
  Receipt Date: 20220620
  Transmission Date: 20220720
  Serious: Yes (Hospitalization, Other)
  Sender: FDA-Public Use
  Company Number: NVSC2021DO037652

PATIENT
  Age: 51 Year
  Sex: Female

DRUGS (3)
  1. GILENYA [Suspect]
     Active Substance: FINGOLIMOD HYDROCHLORIDE
     Indication: Relapsing-remitting multiple sclerosis
     Dosage: 0.5 MG, QD
     Route: 048
     Dates: start: 20170724
  2. GILENYA [Suspect]
     Active Substance: FINGOLIMOD HYDROCHLORIDE
     Dosage: 0.5 MG, QD
     Route: 048
     Dates: start: 20220210
  3. VITAMIN B12 [Concomitant]
     Active Substance: CYANOCOBALAMIN
     Indication: Product used for unknown indication
     Dosage: UNK
     Route: 065

REACTIONS (22)
  - Cholelithiasis [Recovering/Resolving]
  - Loss of consciousness [Unknown]
  - Ill-defined disorder [Unknown]
  - Abdominal discomfort [Unknown]
  - Hepatic steatosis [Unknown]
  - Food poisoning [Unknown]
  - Vomiting [Unknown]
  - Dental discomfort [Unknown]
  - Toothache [Unknown]
  - Tooth disorder [Unknown]
  - Confusional state [Unknown]
  - Discoloured vomit [Unknown]
  - Faeces discoloured [Unknown]
  - Pain [Recovered/Resolved]
  - Pain in extremity [Unknown]
  - Weight increased [Unknown]
  - Vertigo [Unknown]
  - Diarrhoea [Unknown]
  - Dizziness [Unknown]
  - Asthenia [Unknown]
  - Dyspepsia [Unknown]
  - Product dose omission issue [Unknown]

NARRATIVE: CASE EVENT DATE: 20210211
